FAERS Safety Report 16837937 (Version 1)
Quarter: 2019Q3

REPORT INFORMATION
  Report Type: Spontaneous
  Country: FR (occurrence: FR)
  Receive Date: 20190923
  Receipt Date: 20190923
  Transmission Date: 20191005
  Serious: Yes (Hospitalization)
  Sender: FDA-Public Use
  Company Number: FR-TEVA-2019-FR-1110935

PATIENT
  Age: 27 Year
  Sex: Male
  Weight: 64 kg

DRUGS (3)
  1. CISPLATIN. [Suspect]
     Active Substance: CISPLATIN
     Indication: TESTICULAR NEOPLASM
     Dosage: 42 DAYS
     Route: 042
     Dates: start: 20190121, end: 20190304
  2. BLEOMYCINE [Suspect]
     Active Substance: BLEOMYCIN SULFATE
     Indication: TESTICULAR NEOPLASM
     Dosage: 42 DAYS
     Route: 042
     Dates: start: 20190121, end: 20190304
  3. ETOPOSIDE. [Suspect]
     Active Substance: ETOPOSIDE
     Indication: TESTICULAR NEOPLASM
     Dosage: 42 DAYS
     Route: 042
     Dates: start: 20190121, end: 20190304

REACTIONS (1)
  - Pulmonary embolism [Recovering/Resolving]

NARRATIVE: CASE EVENT DATE: 20190227
